FAERS Safety Report 9778533 (Version 4)
Quarter: 2014Q2

REPORT INFORMATION
  Report Type: Spontaneous
  Country: US (occurrence: None)
  Receive Date: 20131219
  Receipt Date: 20140411
  Transmission Date: 20141212
  Serious: Yes (Hospitalization)
  Sender: FDA-Public Use
  Company Number: 2013US002894

PATIENT
  Age: 73 Year
  Sex: Male
  Weight: 52 kg

DRUGS (15)
  1. ICLUSIG [Suspect]
     Indication: CHRONIC MYELOID LEUKAEMIA
     Route: 048
     Dates: start: 201302, end: 201311
  2. WELCHOL (COLESEVELAM HYDROCHLORIDE) [Concomitant]
  3. PROAIR (FLUTICASONE PROPIONATE) [Concomitant]
  4. OXYCODONE / ACETAMINOPHEN (OXYCODONE HYDROCHLORIDE, PARACETAMOL) [Concomitant]
  5. OMEPRAZOLE (OMEPRAZOLE) [Concomitant]
  6. MAGNESIUM (MAGNESIUM) [Concomitant]
  7. LISINOPRIL (LISINOPRIL) [Concomitant]
  8. IRON (IRON) [Concomitant]
  9. HYDROCODONE APAP (HYDROCODONE BITARTRATE, PARACETAMOL) [Concomitant]
  10. GABAPENTIN (GABAPENTIN) [Concomitant]
  11. BRILINTA (TICAGRELOR) [Concomitant]
  12. ATORVASTATIN (ATORVASTATIN) [Concomitant]
  13. ATENOLOL (ATENOLOL) [Concomitant]
  14. ASPIRIN (ASPIRIN) [Concomitant]
  15. AMLODIPINE (AMLODIPINE) [Concomitant]

REACTIONS (4)
  - Myocardial infarction [None]
  - Syncope [None]
  - Acute myocardial infarction [None]
  - Coronary artery stenosis [None]
